FAERS Safety Report 8179479-8 (Version None)
Quarter: 2012Q1

REPORT INFORMATION
  Report Type: 
  Country: None (occurrence: None)
  Receive Date: 20120229
  Receipt Date: 20120224
  Transmission Date: 20120608
  Serious: Yes (Death, Hospitalization)
  Sender: FDA-Public Use
  Company Number: 130484

PATIENT
  Age: 73 Year
  Sex: Male

DRUGS (1)
  1. ACETYLCYSTEINE [Suspect]
     Indication: DYSPNOEA
     Dosage: EVERY 4 HOURS (DOSE UNKNOWN)
     Dates: start: 20110601

REACTIONS (2)
  - DYSPNOEA [None]
  - PNEUMONIA [None]
